FAERS Safety Report 15155064 (Version 1)
Quarter: 2018Q3

REPORT INFORMATION
  Report Type: Spontaneous
  Country: DE (occurrence: DE)
  Receive Date: 20180717
  Receipt Date: 20180717
  Transmission Date: 20181010
  Serious: Yes (Hospitalization)
  Sender: FDA-Public Use
  Company Number: DE-SA-2018SA189531

PATIENT
  Sex: Female

DRUGS (1)
  1. LEMTRADA [Suspect]
     Active Substance: ALEMTUZUMAB
     Dosage: UNK UNK, UNK
     Route: 041

REACTIONS (4)
  - Gastrointestinal disorder [Unknown]
  - Acute hepatic failure [Unknown]
  - Abdominal pain upper [Unknown]
  - Gastritis [Unknown]

NARRATIVE: CASE EVENT DATE: 201806
